FAERS Safety Report 15270607 (Version 2)
Quarter: 2018Q3

REPORT INFORMATION
  Report Type: Spontaneous
  Country: US (occurrence: US)
  Receive Date: 20180813
  Receipt Date: 20180920
  Transmission Date: 20181010
  Serious: Yes (Other)
  Sender: FDA-Public Use
  Company Number: US-ASTRAZENECA-2018SF00103

PATIENT
  Age: 81 Year
  Sex: Female
  Weight: 60.8 kg

DRUGS (2)
  1. BEVESPI AEROSPHERE [Suspect]
     Active Substance: FORMOTEROL FUMARATE\GLYCOPYRROLATE
     Indication: CHRONIC OBSTRUCTIVE PULMONARY DISEASE
     Dosage: STANDARD DOSE, 2 PUFFS, TWICE A DAY
     Route: 055
     Dates: end: 2018
  2. SYMBICORT [Suspect]
     Active Substance: BUDESONIDE\FORMOTEROL FUMARATE DIHYDRATE
     Indication: CHRONIC OBSTRUCTIVE PULMONARY DISEASE
     Dosage: 160/4.5 MCG UNKNOWN UNKNOWN
     Route: 055

REACTIONS (2)
  - Lymphadenopathy [Unknown]
  - Tonsil cancer [Unknown]

NARRATIVE: CASE EVENT DATE: 20180223
